FAERS Safety Report 22527697 (Version 1)
Quarter: 2023Q2

REPORT INFORMATION
  Report Type: Report from Study
  Country: BR (occurrence: BR)
  Receive Date: 20230606
  Receipt Date: 20230606
  Transmission Date: 20230722
  Serious: Yes (Other)
  Sender: FDA-Public Use
  Company Number: BR-002147023-NVSC2023BR127685

PATIENT
  Sex: Female
  Weight: 83 kg

DRUGS (2)
  1. LOSARTAN [Suspect]
     Active Substance: LOSARTAN
     Indication: Product used for unknown indication
     Dosage: 50 MG, TID
     Route: 065
     Dates: start: 2001, end: 20230313
  2. SERTRALINE [Concomitant]
     Active Substance: SERTRALINE HYDROCHLORIDE
     Indication: Anxiety
     Dosage: 1 DOSAGE FORM (AT 1 PM)AFTER  HOSPITALIZATION,  SHE WAS  UNABLE TO  REPORT ANYTHING  PRECISELY
     Route: 048

REACTIONS (21)
  - Myocardial fibrosis [Recovered/Resolved]
  - Myocardial infarction [Recovered/Resolved]
  - Dilated cardiomyopathy [Recovered/Resolved]
  - Ejection fraction decreased [Recovered/Resolved]
  - Hypertension [Recovered/Resolved]
  - Back pain [Recovered/Resolved]
  - Muscle spasms [Recovered/Resolved]
  - Dyspnoea [Recovered/Resolved]
  - Pain in extremity [Recovered/Resolved]
  - Hyperhidrosis [Recovered/Resolved]
  - Throat tightness [Recovered/Resolved]
  - Limb discomfort [Recovered/Resolved]
  - Heart rate decreased [Recovered/Resolved]
  - Fatigue [Recovered/Resolved]
  - Cardiac disorder [Recovered/Resolved]
  - Hypersensitivity [Recovered/Resolved]
  - Secretion discharge [Recovered/Resolved]
  - Throat irritation [Recovered/Resolved]
  - Spinal pain [Not Recovered/Not Resolved]
  - Muscle injury [Recovered/Resolved]
  - Cough [Recovered/Resolved]

NARRATIVE: CASE EVENT DATE: 20010101
